FAERS Safety Report 24887146 (Version 1)
Quarter: 2025Q1

REPORT INFORMATION
  Report Type: Spontaneous
  Country: CA (occurrence: CA)
  Receive Date: 20250127
  Receipt Date: 20250127
  Transmission Date: 20250409
  Serious: Yes (Death, Life-Threatening, Hospitalization, Disabling, Congenital Anomaly, Other)
  Sender: Haleon PLC
  Company Number: CA-HALEON-2224634

PATIENT
  Age: 40 Year
  Sex: Female
  Weight: 96 kg

DRUGS (233)
  1. DICLOFENAC [Suspect]
     Active Substance: DICLOFENAC
     Indication: Product used for unknown indication
  2. DICLOFENAC SODIUM [Suspect]
     Active Substance: DICLOFENAC SODIUM
     Indication: Product used for unknown indication
  3. DICLOFENAC SODIUM [Suspect]
     Active Substance: DICLOFENAC SODIUM
  4. CALCIUM CARBONATE [Suspect]
     Active Substance: CALCIUM CARBONATE
     Indication: Product used for unknown indication
  5. HYDROCORTISONE [Suspect]
     Active Substance: HYDROCORTISONE
     Indication: Product used for unknown indication
  6. ACETAMINOPHEN [Suspect]
     Active Substance: ACETAMINOPHEN
     Indication: Product used for unknown indication
     Route: 058
  7. ACETAMINOPHEN [Suspect]
     Active Substance: ACETAMINOPHEN
  8. BERINERT [Suspect]
     Active Substance: HUMAN C1-ESTERASE INHIBITOR
     Indication: Product used for unknown indication
  9. BOTULINUM TOXIN TYPE A [Suspect]
     Active Substance: BOTULINUM TOXIN TYPE A
     Indication: Product used for unknown indication
  10. BUTRANS [Suspect]
     Active Substance: BUPRENORPHINE
     Indication: Product used for unknown indication
  11. BUTRANS [Suspect]
     Active Substance: BUPRENORPHINE
  12. ACETAMINOPHEN\ASPIRIN\CAFFEINE\CHLORPHENIRAMINE MALEATE\DIHYDROCODEINE [Suspect]
     Active Substance: ACETAMINOPHEN\ASPIRIN\CAFFEINE\CHLORPHENIRAMINE MALEATE\DIHYDROCODEINE\EPHEDRINE
     Indication: Rheumatoid arthritis
  13. TRANEXAMIC ACID [Suspect]
     Active Substance: TRANEXAMIC ACID
  14. ACETAMINOPHEN\ASPIRIN\CAFFEINE\CHLORPHENIRAMINE MALEATE\DIHYDROCODEINE [Suspect]
     Active Substance: ACETAMINOPHEN\ASPIRIN\CAFFEINE\CHLORPHENIRAMINE MALEATE\DIHYDROCODEINE\EPHEDRINE
  15. TRANEXAMIC ACID [Suspect]
     Active Substance: TRANEXAMIC ACID
  16. ACETAMINOPHEN\ASPIRIN\CAFFEINE\CHLORPHENIRAMINE MALEATE\DIHYDROCODEINE [Suspect]
     Active Substance: ACETAMINOPHEN\ASPIRIN\CAFFEINE\CHLORPHENIRAMINE MALEATE\DIHYDROCODEINE\EPHEDRINE
  17. CALCIUM ASCORBATE [Suspect]
     Active Substance: CALCIUM ASCORBATE
     Indication: Product used for unknown indication
  18. CALCIUM ASCORBATE [Suspect]
     Active Substance: CALCIUM ASCORBATE
  19. CIMZIA [Suspect]
     Active Substance: CERTOLIZUMAB PEGOL
     Indication: Rheumatoid arthritis
  20. CIMZIA [Suspect]
     Active Substance: CERTOLIZUMAB PEGOL
  21. CIMZIA [Suspect]
     Active Substance: CERTOLIZUMAB PEGOL
  22. CIMZIA [Suspect]
     Active Substance: CERTOLIZUMAB PEGOL
  23. CORTISONE ACETATE [Suspect]
     Active Substance: CORTISONE ACETATE
     Indication: Rheumatoid arthritis
  24. CORTISONE ACETATE [Suspect]
     Active Substance: CORTISONE ACETATE
  25. CORTISONE ACETATE [Suspect]
     Active Substance: CORTISONE ACETATE
  26. CORTISONE ACETATE [Suspect]
     Active Substance: CORTISONE ACETATE
  27. COSENTYX [Suspect]
     Active Substance: SECUKINUMAB
     Indication: Psoriatic arthropathy
  28. DESOGESTREL\ETHINYL ESTRADIOL [Concomitant]
     Active Substance: DESOGESTREL\ETHINYL ESTRADIOL
     Indication: Product used for unknown indication
  29. DESOXIMETASONE [Suspect]
     Active Substance: DESOXIMETASONE
     Indication: Rheumatoid arthritis
  30. DESOXIMETASONE [Suspect]
     Active Substance: DESOXIMETASONE
  31. DESOXIMETASONE [Suspect]
     Active Substance: DESOXIMETASONE
  32. DESOXIMETASONE [Suspect]
     Active Substance: DESOXIMETASONE
  33. DESOXIMETASONE [Suspect]
     Active Substance: DESOXIMETASONE
  34. FOSAMAX [Suspect]
     Active Substance: ALENDRONATE SODIUM
     Indication: Rheumatoid arthritis
  35. FOSAMAX [Suspect]
     Active Substance: ALENDRONATE SODIUM
  36. FOSAMAX [Suspect]
     Active Substance: ALENDRONATE SODIUM
  37. GOLD [Suspect]
     Active Substance: GOLD
     Indication: Product used for unknown indication
  38. HAIR KERATIN AMINO ACIDS GOLD COMPLEX [Suspect]
     Active Substance: HAIR KERATIN AMINO ACIDS GOLD COMPLEX
     Indication: Product used for unknown indication
  39. GOLD SODIUM THIOMALATE [Suspect]
     Active Substance: GOLD SODIUM THIOMALATE
     Indication: Product used for unknown indication
  40. GOLD SODIUM THIOMALATE [Suspect]
     Active Substance: GOLD SODIUM THIOMALATE
  41. HYDROCORTISONE PROBUTATE [Suspect]
     Active Substance: HYDROCORTISONE PROBUTATE
     Indication: Rheumatoid arthritis
  42. HYDROXYCHLOROQUINE [Suspect]
     Active Substance: HYDROXYCHLOROQUINE
     Indication: Rheumatoid arthritis
  43. HYDROXYCHLOROQUINE [Suspect]
     Active Substance: HYDROXYCHLOROQUINE
  44. HYDROXYCHLOROQUINE [Suspect]
     Active Substance: HYDROXYCHLOROQUINE
  45. HYDROXYCHLOROQUINE SULFATE [Suspect]
     Active Substance: HYDROXYCHLOROQUINE SULFATE
     Indication: Rheumatoid arthritis
  46. HYRIMOZ [Suspect]
     Active Substance: ADALIMUMAB-ADAZ
     Indication: Rheumatoid arthritis
  47. HYRIMOZ [Suspect]
     Active Substance: ADALIMUMAB-ADAZ
  48. HYRIMOZ [Suspect]
     Active Substance: ADALIMUMAB-ADAZ
     Route: 058
  49. HYRIMOZ [Suspect]
     Active Substance: ADALIMUMAB-ADAZ
  50. HYRIMOZ [Suspect]
     Active Substance: ADALIMUMAB-ADAZ
  51. OTEZLA [Suspect]
     Active Substance: APREMILAST
     Indication: Rheumatoid arthritis
  52. RAMIPRIL [Suspect]
     Active Substance: RAMIPRIL
     Indication: Rheumatoid arthritis
  53. RAMIPRIL [Suspect]
     Active Substance: RAMIPRIL
  54. RAMIPRIL [Suspect]
     Active Substance: RAMIPRIL
  55. RANITIDINE [Suspect]
     Active Substance: RANITIDINE
     Indication: Product used for unknown indication
  56. CETIRIZINE HYDROCHLORIDE\PSEUDOEPHEDRINE HYDROCHLORIDE [Suspect]
     Active Substance: CETIRIZINE HYDROCHLORIDE\PSEUDOEPHEDRINE HYDROCHLORIDE
     Indication: Rheumatoid arthritis
  57. CETIRIZINE HYDROCHLORIDE\PSEUDOEPHEDRINE HYDROCHLORIDE [Suspect]
     Active Substance: CETIRIZINE HYDROCHLORIDE\PSEUDOEPHEDRINE HYDROCHLORIDE
  58. CETIRIZINE HYDROCHLORIDE\PSEUDOEPHEDRINE HYDROCHLORIDE [Suspect]
     Active Substance: CETIRIZINE HYDROCHLORIDE\PSEUDOEPHEDRINE HYDROCHLORIDE
  59. CETIRIZINE HYDROCHLORIDE\PSEUDOEPHEDRINE HYDROCHLORIDE [Suspect]
     Active Substance: CETIRIZINE HYDROCHLORIDE\PSEUDOEPHEDRINE HYDROCHLORIDE
  60. CETIRIZINE HYDROCHLORIDE\PSEUDOEPHEDRINE HYDROCHLORIDE [Suspect]
     Active Substance: CETIRIZINE HYDROCHLORIDE\PSEUDOEPHEDRINE HYDROCHLORIDE
  61. CETIRIZINE HYDROCHLORIDE\PSEUDOEPHEDRINE HYDROCHLORIDE [Suspect]
     Active Substance: CETIRIZINE HYDROCHLORIDE\PSEUDOEPHEDRINE HYDROCHLORIDE
  62. CETIRIZINE HYDROCHLORIDE\PSEUDOEPHEDRINE HYDROCHLORIDE [Suspect]
     Active Substance: CETIRIZINE HYDROCHLORIDE\PSEUDOEPHEDRINE HYDROCHLORIDE
  63. CETIRIZINE HYDROCHLORIDE\PSEUDOEPHEDRINE HYDROCHLORIDE [Suspect]
     Active Substance: CETIRIZINE HYDROCHLORIDE\PSEUDOEPHEDRINE HYDROCHLORIDE
  64. REMICADE [Suspect]
     Active Substance: INFLIXIMAB
     Indication: Rheumatoid arthritis
     Route: 041
  65. RIBOFLAVIN [Suspect]
     Active Substance: RIBOFLAVIN
     Indication: Product used for unknown indication
  66. RITUXIMAB [Suspect]
     Active Substance: RITUXIMAB
     Indication: Rheumatoid arthritis
  67. RITUXIMAB [Suspect]
     Active Substance: RITUXIMAB
  68. RITUXIMAB [Suspect]
     Active Substance: RITUXIMAB
  69. RITUXIMAB [Suspect]
     Active Substance: RITUXIMAB
  70. RITUXIMAB [Suspect]
     Active Substance: RITUXIMAB
  71. RITUXIMAB [Suspect]
     Active Substance: RITUXIMAB
  72. RITUXIMAB [Suspect]
     Active Substance: RITUXIMAB
  73. RITUXIMAB [Suspect]
     Active Substance: RITUXIMAB
  74. RITUXIMAB [Suspect]
     Active Substance: RITUXIMAB
  75. SULFASALAZINE [Suspect]
     Active Substance: SULFASALAZINE
     Indication: Rheumatoid arthritis
  76. ATOMOXETINE HYDROCHLORIDE [Suspect]
     Active Substance: ATOMOXETINE HYDROCHLORIDE
     Indication: Migraine
  77. ATOMOXETINE HYDROCHLORIDE [Suspect]
     Active Substance: ATOMOXETINE HYDROCHLORIDE
  78. ATOMOXETINE HYDROCHLORIDE [Suspect]
     Active Substance: ATOMOXETINE HYDROCHLORIDE
  79. CANDESARTAN CILEXETIL [Suspect]
     Active Substance: CANDESARTAN CILEXETIL
     Indication: Product used for unknown indication
     Route: 048
  80. CALCIUM CARBONATE\CHOLECALCIFEROL [Suspect]
     Active Substance: CALCIUM CARBONATE\CHOLECALCIFEROL
     Indication: Product used for unknown indication
  81. CHLORHEXIDINE GLUCONATE [Suspect]
     Active Substance: CHLORHEXIDINE GLUCONATE
     Indication: Product used for unknown indication
  82. CHLORHEXIDINE GLUCONATE [Suspect]
     Active Substance: CHLORHEXIDINE GLUCONATE
  83. VITAMIN C [Suspect]
     Active Substance: ASCORBIC ACID
     Indication: Product used for unknown indication
  84. ACETAMINOPHEN AND CODEINE [Suspect]
     Active Substance: ACETAMINOPHEN\CODEINE PHOSPHATE
     Indication: Product used for unknown indication
  85. ACTEMRA [Suspect]
     Active Substance: TOCILIZUMAB
     Indication: Rheumatoid arthritis
  86. ACTEMRA [Suspect]
     Active Substance: TOCILIZUMAB
  87. ACTEMRA [Suspect]
     Active Substance: TOCILIZUMAB
  88. ACTEMRA [Suspect]
     Active Substance: TOCILIZUMAB
  89. ACTEMRA [Suspect]
     Active Substance: TOCILIZUMAB
  90. ACTEMRA [Suspect]
     Active Substance: TOCILIZUMAB
  91. ACTEMRA [Suspect]
     Active Substance: TOCILIZUMAB
  92. ACTEMRA [Suspect]
     Active Substance: TOCILIZUMAB
  93. ACTEMRA [Suspect]
     Active Substance: TOCILIZUMAB
  94. ACTEMRA [Suspect]
     Active Substance: TOCILIZUMAB
  95. ACTEMRA [Suspect]
     Active Substance: TOCILIZUMAB
  96. ACTEMRA [Suspect]
     Active Substance: TOCILIZUMAB
  97. ACTEMRA [Suspect]
     Active Substance: TOCILIZUMAB
  98. ACTEMRA [Suspect]
     Active Substance: TOCILIZUMAB
  99. AIMOVIG [Suspect]
     Active Substance: ERENUMAB-AOOE
     Indication: Product used for unknown indication
  100. AIMOVIG [Suspect]
     Active Substance: ERENUMAB-AOOE
  101. AIMOVIG [Suspect]
     Active Substance: ERENUMAB-AOOE
  102. AIMOVIG [Suspect]
     Active Substance: ERENUMAB-AOOE
  103. ALENDRONATE SODIUM [Suspect]
     Active Substance: ALENDRONATE SODIUM
     Indication: Rheumatoid arthritis
  104. ALENDRONATE SODIUM [Suspect]
     Active Substance: ALENDRONATE SODIUM
     Route: 048
  105. ALENDRONATE SODIUM [Suspect]
     Active Substance: ALENDRONATE SODIUM
  106. LEFLUNOMIDE [Suspect]
     Active Substance: LEFLUNOMIDE
     Indication: Rheumatoid arthritis
  107. LEFLUNOMIDE [Suspect]
     Active Substance: LEFLUNOMIDE
  108. LEFLUNOMIDE [Suspect]
     Active Substance: LEFLUNOMIDE
  109. LEFLUNOMIDE [Suspect]
     Active Substance: LEFLUNOMIDE
  110. LEFLUNOMIDE [Suspect]
     Active Substance: LEFLUNOMIDE
  111. LEFLUNOMIDE [Suspect]
     Active Substance: LEFLUNOMIDE
  112. LEFLUNOMIDE [Suspect]
     Active Substance: LEFLUNOMIDE
  113. ARAVA [Suspect]
     Active Substance: LEFLUNOMIDE
     Indication: Rheumatoid arthritis
  114. ARAVA [Suspect]
     Active Substance: LEFLUNOMIDE
     Route: 048
  115. AZATHIOPRINE SODIUM [Suspect]
     Active Substance: AZATHIOPRINE SODIUM
     Indication: Rheumatoid arthritis
  116. AZATHIOPRINE SODIUM [Suspect]
     Active Substance: AZATHIOPRINE SODIUM
  117. CALCIUM GLUBIONATE [Suspect]
     Active Substance: CALCIUM GLUBIONATE
     Indication: Product used for unknown indication
  118. CALCIUM GLUBIONATE [Suspect]
     Active Substance: CALCIUM GLUBIONATE
  119. CELEBREX [Suspect]
     Active Substance: CELECOXIB
     Indication: Product used for unknown indication
  120. CELEBREX [Suspect]
     Active Substance: CELECOXIB
  121. CELEBREX [Suspect]
     Active Substance: CELECOXIB
  122. CELEBREX [Suspect]
     Active Substance: CELECOXIB
  123. CETIRIZINE HYDROCHLORIDE [Suspect]
     Active Substance: CETIRIZINE HYDROCHLORIDE
     Indication: Rheumatoid arthritis
  124. CETIRIZINE HYDROCHLORIDE [Suspect]
     Active Substance: CETIRIZINE HYDROCHLORIDE
  125. DOMPERIDONE MALEATE [Suspect]
     Active Substance: DOMPERIDONE MALEATE
     Indication: Product used for unknown indication
  126. DOMPERIDONE MALEATE [Suspect]
     Active Substance: DOMPERIDONE MALEATE
  127. ENBREL [Suspect]
     Active Substance: ETANERCEPT
     Indication: Rheumatoid arthritis
     Route: 058
  128. ENBREL [Suspect]
     Active Substance: ETANERCEPT
     Route: 058
  129. ENBREL [Suspect]
     Active Substance: ETANERCEPT
     Route: 058
  130. ENBREL [Suspect]
     Active Substance: ETANERCEPT
     Route: 058
  131. ENBREL [Suspect]
     Active Substance: ETANERCEPT
     Route: 058
  132. ERGOCALCIFEROL [Suspect]
     Active Substance: ERGOCALCIFEROL
     Indication: Product used for unknown indication
  133. ERGOCALCIFEROL [Suspect]
     Active Substance: ERGOCALCIFEROL
  134. FLUMETHASONE [Suspect]
     Active Substance: FLUMETHASONE
     Indication: Product used for unknown indication
  135. FLUMETHASONE PIVALATE [Suspect]
     Active Substance: FLUMETHASONE PIVALATE
     Indication: Product used for unknown indication
  136. FOLIC ACID [Suspect]
     Active Substance: FOLIC ACID
     Indication: Rheumatoid arthritis
  137. FOLIC ACID [Suspect]
     Active Substance: FOLIC ACID
  138. FOLIC ACID [Suspect]
     Active Substance: FOLIC ACID
  139. FOLIC ACID [Suspect]
     Active Substance: FOLIC ACID
  140. FOLIC ACID [Suspect]
     Active Substance: FOLIC ACID
  141. FOLIC ACID [Suspect]
     Active Substance: FOLIC ACID
  142. FOLIC ACID [Suspect]
     Active Substance: FOLIC ACID
  143. FOLIC ACID [Suspect]
     Active Substance: FOLIC ACID
  144. FOLIC ACID [Suspect]
     Active Substance: FOLIC ACID
  145. FOLIC ACID [Suspect]
     Active Substance: FOLIC ACID
  146. FOLIC ACID [Suspect]
     Active Substance: FOLIC ACID
  147. FOLIC ACID [Suspect]
     Active Substance: FOLIC ACID
  148. FOLIC ACID [Suspect]
     Active Substance: FOLIC ACID
  149. INFLIXIMAB [Suspect]
     Active Substance: INFLIXIMAB
     Indication: Rheumatoid arthritis
  150. INFLIXIMAB [Suspect]
     Active Substance: INFLIXIMAB
  151. INFLIXIMAB [Suspect]
     Active Substance: INFLIXIMAB
  152. INFLIXIMAB [Suspect]
     Active Substance: INFLIXIMAB
  153. INFLIXIMAB [Suspect]
     Active Substance: INFLIXIMAB
  154. ISOPROPYL ALCOHOL [Suspect]
     Active Substance: ISOPROPYL ALCOHOL
     Indication: Product used for unknown indication
     Route: 061
  155. ISOPROPYL ALCOHOL [Suspect]
     Active Substance: ISOPROPYL ALCOHOL
  156. LAMICTAL [Suspect]
     Active Substance: LAMOTRIGINE
     Indication: Product used for unknown indication
  157. LAMICTAL [Suspect]
     Active Substance: LAMOTRIGINE
  158. LAMICTAL [Suspect]
     Active Substance: LAMOTRIGINE
  159. MEGLUMINE [Suspect]
     Active Substance: MEGLUMINE
     Indication: Product used for unknown indication
  160. METHOTREXATE [Suspect]
     Active Substance: METHOTREXATE
     Indication: Rheumatoid arthritis
  161. METHOTREXATE [Suspect]
     Active Substance: METHOTREXATE
  162. METHOTREXATE [Suspect]
     Active Substance: METHOTREXATE
  163. METHOTREXATE [Suspect]
     Active Substance: METHOTREXATE
  164. METHYLPREDNISOLONE [Suspect]
     Active Substance: METHYLPREDNISOLONE
     Indication: Product used for unknown indication
  165. METHYLPREDNISOLONE SODIUM SUCCINATE [Suspect]
     Active Substance: METHYLPREDNISOLONE SODIUM SUCCINATE
     Indication: Product used for unknown indication
  166. MINOCYCLINE [Suspect]
     Active Substance: MINOCYCLINE HYDROCHLORIDE
     Indication: Rheumatoid arthritis
  167. MINOCYCLINE [Suspect]
     Active Substance: MINOCYCLINE HYDROCHLORIDE
  168. MINOCYCLINE [Suspect]
     Active Substance: MINOCYCLINE HYDROCHLORIDE
  169. MYOCHRYSINE [Suspect]
     Active Substance: GOLD SODIUM THIOMALATE
     Indication: Rheumatoid arthritis
     Route: 030
  170. MYOCHRYSINE [Suspect]
     Active Substance: GOLD SODIUM THIOMALATE
     Route: 030
  171. MYRBETRIQ [Suspect]
     Active Substance: MIRABEGRON
     Indication: Product used for unknown indication
  172. MYRBETRIQ [Suspect]
     Active Substance: MIRABEGRON
  173. NAPROXEN [Suspect]
     Active Substance: NAPROXEN
     Indication: Product used for unknown indication
  174. NAPROXEN [Suspect]
     Active Substance: NAPROXEN
  175. NAPROXEN [Concomitant]
     Active Substance: NAPROXEN
     Indication: Product used for unknown indication
  176. NAPROXEN [Concomitant]
     Active Substance: NAPROXEN
  177. NAPROXEN SODIUM [Suspect]
     Active Substance: NAPROXEN SODIUM
     Indication: Rheumatoid arthritis
  178. NAPROXEN SODIUM [Suspect]
     Active Substance: NAPROXEN SODIUM
  179. NICOTINAMIDE [Suspect]
     Active Substance: NIACINAMIDE
     Indication: Product used for unknown indication
  180. NUCALA [Suspect]
     Active Substance: MEPOLIZUMAB
     Indication: Product used for unknown indication
  181. ORENCIA [Suspect]
     Active Substance: ABATACEPT
     Indication: Rheumatoid arthritis
  182. ORENCIA [Suspect]
     Active Substance: ABATACEPT
  183. ORENCIA [Suspect]
     Active Substance: ABATACEPT
  184. ORENCIA [Suspect]
     Active Substance: ABATACEPT
  185. ORENCIA [Suspect]
     Active Substance: ABATACEPT
  186. ORENCIA [Suspect]
     Active Substance: ABATACEPT
  187. OXYCODONE [Suspect]
     Active Substance: OXYCODONE
     Indication: Product used for unknown indication
  188. OXYCODONE TEREPHTHALATE [Suspect]
     Active Substance: OXYCODONE TEREPHTHALATE
     Indication: Product used for unknown indication
  189. PERIOGARD [Suspect]
     Active Substance: CHLORHEXIDINE GLUCONATE
     Indication: Product used for unknown indication
  190. PHTHALYLSULFATHIAZOLE [Suspect]
     Active Substance: PHTHALYLSULFATHIAZOLE
     Indication: Rheumatoid arthritis
  191. PHTHALYLSULFATHIAZOLE [Suspect]
     Active Substance: PHTHALYLSULFATHIAZOLE
  192. PHTHALYLSULFATHIAZOLE [Suspect]
     Active Substance: PHTHALYLSULFATHIAZOLE
  193. PHTHALYLSULFATHIAZOLE [Suspect]
     Active Substance: PHTHALYLSULFATHIAZOLE
  194. PHTHALYLSULFATHIAZOLE [Suspect]
     Active Substance: PHTHALYLSULFATHIAZOLE
  195. PHTHALYLSULFATHIAZOLE [Suspect]
     Active Substance: PHTHALYLSULFATHIAZOLE
  196. PLAQUENIL [Suspect]
     Active Substance: HYDROXYCHLOROQUINE SULFATE
     Indication: Rheumatoid arthritis
  197. PREDNISONE [Suspect]
     Active Substance: PREDNISONE
     Indication: Rheumatoid arthritis
  198. PREDNISONE [Suspect]
     Active Substance: PREDNISONE
  199. PREDNISONE [Suspect]
     Active Substance: PREDNISONE
  200. PREDNISONE [Suspect]
     Active Substance: PREDNISONE
  201. PREDNISONE [Suspect]
     Active Substance: PREDNISONE
  202. PSEUDOEPHEDRINE [Suspect]
     Active Substance: PSEUDOEPHEDRINE
     Indication: Rheumatoid arthritis
  203. PSEUDOEPHEDRINE [Suspect]
     Active Substance: PSEUDOEPHEDRINE
  204. PSEUDOEPHEDRINE [Suspect]
     Active Substance: PSEUDOEPHEDRINE
  205. PSEUDOEPHEDRINE [Suspect]
     Active Substance: PSEUDOEPHEDRINE
  206. PSEUDOEPHEDRINE [Suspect]
     Active Substance: PSEUDOEPHEDRINE
  207. PSEUDOEPHEDRINE HYDROCHLORIDE [Suspect]
     Active Substance: PSEUDOEPHEDRINE HYDROCHLORIDE
     Indication: Rheumatoid arthritis
  208. LEFLUNOMIDE [Suspect]
     Active Substance: LEFLUNOMIDE
     Indication: Product used for unknown indication
  209. LEFLUNOMIDE [Suspect]
     Active Substance: LEFLUNOMIDE
  210. LEFLUNOMIDE [Suspect]
     Active Substance: LEFLUNOMIDE
  211. SIMPONI [Suspect]
     Active Substance: GOLIMUMAB
     Indication: Rheumatoid arthritis
     Route: 058
  212. SIMPONI [Suspect]
     Active Substance: GOLIMUMAB
     Indication: Prostatic specific antigen
     Route: 058
  213. SIMPONI [Suspect]
     Active Substance: GOLIMUMAB
     Route: 058
  214. SIMPONI [Suspect]
     Active Substance: GOLIMUMAB
     Route: 058
  215. SIMPONI [Suspect]
     Active Substance: GOLIMUMAB
     Route: 058
  216. SIRUKUMAB [Suspect]
     Active Substance: SIRUKUMAB
     Indication: Product used for unknown indication
  217. SIRUKUMAB [Suspect]
     Active Substance: SIRUKUMAB
  218. SIRUKUMAB [Suspect]
     Active Substance: SIRUKUMAB
  219. SIRUKUMAB [Suspect]
     Active Substance: SIRUKUMAB
  220. GOLD SODIUM THIOMALATE [Suspect]
     Active Substance: GOLD SODIUM THIOMALATE
     Indication: Product used for unknown indication
  221. GOLD SODIUM THIOMALATE [Suspect]
     Active Substance: GOLD SODIUM THIOMALATE
  222. GOLD SODIUM THIOMALATE [Suspect]
     Active Substance: GOLD SODIUM THIOMALATE
     Route: 058
  223. STELARA [Suspect]
     Active Substance: USTEKINUMAB
     Indication: Product used for unknown indication
  224. STELARA [Suspect]
     Active Substance: USTEKINUMAB
     Route: 058
  225. SULFAMETHOXAZOLE\TRIMETHOPRIM [Suspect]
     Active Substance: SULFAMETHOXAZOLE\TRIMETHOPRIM
     Indication: Rheumatoid arthritis
  226. SULFASALAZINE [Suspect]
     Active Substance: SULFASALAZINE
     Indication: Rheumatoid arthritis
  227. SULFASALAZINE [Suspect]
     Active Substance: SULFASALAZINE
  228. SULFASALAZINE [Suspect]
     Active Substance: SULFASALAZINE
  229. SULFASALAZINE [Suspect]
     Active Substance: SULFASALAZINE
  230. SULFASALAZINE [Suspect]
     Active Substance: SULFASALAZINE
  231. TRAMADOL HYDROCHLORIDE [Suspect]
     Active Substance: TRAMADOL HYDROCHLORIDE
     Indication: Product used for unknown indication
  232. XELJANZ [Suspect]
     Active Substance: TOFACITINIB CITRATE
     Indication: Rheumatoid arthritis
  233. XELJANZ [Suspect]
     Active Substance: TOFACITINIB CITRATE

REACTIONS (109)
  - Drug-induced liver injury [Fatal]
  - Dizziness [Fatal]
  - Blister [Fatal]
  - Live birth [Unknown]
  - Arthropathy [Fatal]
  - Paraesthesia [Fatal]
  - Muscular weakness [Fatal]
  - Pemphigus [Fatal]
  - Fatigue [Fatal]
  - Hypoaesthesia [Fatal]
  - Nasopharyngitis [Fatal]
  - Drug intolerance [Fatal]
  - Migraine [Fatal]
  - Joint range of motion decreased [Fatal]
  - Injection site reaction [Fatal]
  - Lip dry [Fatal]
  - Blood cholesterol increased [Fatal]
  - Peripheral swelling [Fatal]
  - Osteoarthritis [Fatal]
  - Pericarditis [Fatal]
  - Back injury [Fatal]
  - Gastrooesophageal reflux disease [Fatal]
  - Depression [Fatal]
  - Rash [Fatal]
  - Hypertension [Fatal]
  - Fibromyalgia [Fatal]
  - Injury [Fatal]
  - Pain [Fatal]
  - Ill-defined disorder [Fatal]
  - Malaise [Fatal]
  - Bursitis [Fatal]
  - Fall [Fatal]
  - Epilepsy [Fatal]
  - Exposure during pregnancy [Unknown]
  - Onychomycosis [Fatal]
  - Maternal exposure during pregnancy [Unknown]
  - Inflammation [Fatal]
  - C-reactive protein increased [Fatal]
  - Facet joint syndrome [Fatal]
  - Hand deformity [Fatal]
  - Abdominal distension [Fatal]
  - Dyspnoea [Fatal]
  - Dyspepsia [Fatal]
  - Onychomadesis [Fatal]
  - Psoriatic arthropathy [Fatal]
  - Mobility decreased [Fatal]
  - Folliculitis [Fatal]
  - Irritable bowel syndrome [Fatal]
  - Glossodynia [Fatal]
  - General physical health deterioration [Fatal]
  - Nausea [Fatal]
  - Confusional state [Fatal]
  - Muscle spasms [Fatal]
  - Memory impairment [Fatal]
  - Swelling [Fatal]
  - Adverse reaction [Fatal]
  - Liver function test increased [Fatal]
  - Helicobacter infection [Fatal]
  - Contraindicated product administered [Fatal]
  - Hepatic enzyme increased [Fatal]
  - Headache [Fatal]
  - Hypercholesterolaemia [Fatal]
  - Musculoskeletal stiffness [Fatal]
  - Night sweats [Fatal]
  - Rheumatoid arthritis [Fatal]
  - Lower respiratory tract infection [Fatal]
  - Condition aggravated [Fatal]
  - Musculoskeletal pain [Fatal]
  - Drug ineffective [Fatal]
  - Neck pain [Fatal]
  - Sleep disorder [Fatal]
  - Liver injury [Fatal]
  - Arthralgia [Fatal]
  - Impaired healing [Fatal]
  - Blepharospasm [Fatal]
  - Coeliac disease [Fatal]
  - Infusion related reaction [Fatal]
  - Off label use [Fatal]
  - Abdominal discomfort [Fatal]
  - Breast cancer stage III [Fatal]
  - Muscle injury [Fatal]
  - Stomatitis [Fatal]
  - Gait inability [Fatal]
  - Joint swelling [Fatal]
  - Abdominal pain upper [Fatal]
  - Alopecia [Fatal]
  - Pain in extremity [Fatal]
  - Synovitis [Fatal]
  - Nail disorder [Fatal]
  - Intentional product use issue [Fatal]
  - Drug hypersensitivity [Fatal]
  - Obesity [Fatal]
  - Insomnia [Fatal]
  - C-reactive protein abnormal [Fatal]
  - Hypersensitivity [Fatal]
  - Rheumatic fever [Fatal]
  - Grip strength decreased [Fatal]
  - Finger deformity [Fatal]
  - Duodenal ulcer perforation [Fatal]
  - Diarrhoea [Fatal]
  - Pneumonia [Fatal]
  - Dry mouth [Fatal]
  - Peripheral venous disease [Fatal]
  - Anti-cyclic citrullinated peptide antibody positive [Fatal]
  - Lung disorder [Fatal]
  - Asthenia [Fatal]
  - Gastrointestinal disorder [Fatal]
  - Systemic lupus erythematosus [Fatal]
  - Hepatitis [Fatal]
